FAERS Safety Report 9486866 (Version 1)
Quarter: 2013Q3

REPORT INFORMATION
  Report Type: Spontaneous
  Country: US (occurrence: US)
  Receive Date: 20130829
  Receipt Date: 20130829
  Transmission Date: 20140515
  Serious: Yes (Other)
  Sender: FDA-Public Use
  Company Number: US-ABBOTT-13P-163-1136535-00

PATIENT
  Sex: Female
  Weight: 59.02 kg

DRUGS (5)
  1. SYNTHROID [Suspect]
     Indication: HYPOTHYROIDISM
     Route: 048
     Dates: start: 1998
  2. METOPROLOL [Concomitant]
     Indication: HYPERTENSION
  3. ATORVASTATIN [Concomitant]
     Indication: BLOOD CHOLESTEROL INCREASED
  4. ASPIRIN [Concomitant]
     Indication: THROMBOSIS PROPHYLAXIS
  5. HYALURONIC ACID [Concomitant]
     Indication: ARTHROPATHY

REACTIONS (7)
  - Cerebrovascular accident [Not Recovered/Not Resolved]
  - Coeliac disease [Not Recovered/Not Resolved]
  - Eructation [Not Recovered/Not Resolved]
  - Vertigo [Recovered/Resolved]
  - Hypoaesthesia [Recovering/Resolving]
  - Paraesthesia [Unknown]
  - Hemiparesis [Recovering/Resolving]
